FAERS Safety Report 9960111 (Version 2)
Quarter: 2014Q2

REPORT INFORMATION
  Report Type: Spontaneous
  Country: US (occurrence: None)
  Receive Date: 20140228
  Receipt Date: 20140403
  Transmission Date: 20141212
  Serious: Yes (Hospitalization, Other)
  Sender: FDA-Public Use
  Company Number: UTC-044883

PATIENT
  Age: 68 Year
  Sex: Female
  Weight: 109.5 kg

DRUGS (4)
  1. TYVASO [Suspect]
     Indication: PULMONARY ARTERIAL HYPERTENSION
     Dosage: 18-54 MICROGRAM (4 IN 1 D),
     Route: 055
     Dates: start: 20140131, end: 2014
  2. LETAIRIS (AMBRISENTAN)(UNKNOWN) [Concomitant]
  3. XARELTO (RIVAROXABAN)(UNKNOWN) [Concomitant]
  4. ADCIRCA(TADALAFIL) [Concomitant]

REACTIONS (5)
  - Adverse drug reaction [None]
  - Syncope [None]
  - Loss of consciousness [None]
  - Dizziness [None]
  - Hypotension [None]
